FAERS Safety Report 21745808 (Version 1)
Quarter: 2022Q4

REPORT INFORMATION
  Report Type: Report from Study
  Country: US (occurrence: US)
  Receive Date: 20221219
  Receipt Date: 20221219
  Transmission Date: 20230112
  Serious: No
  Sender: FDA-Public Use
  Company Number: US-ABBVIE-22K-163-4475380-00

PATIENT
  Sex: Male

DRUGS (3)
  1. SKYRIZI [Suspect]
     Active Substance: RISANKIZUMAB-RZAA
     Indication: Psoriasis
     Dosage: SKYRIZI 150MG WEEK 0
     Route: 058
     Dates: start: 20220520, end: 20220520
  2. SKYRIZI [Suspect]
     Active Substance: RISANKIZUMAB-RZAA
     Dosage: SKYRIZI 150 MG WEEK 4
     Route: 058
     Dates: start: 20220617, end: 20220617
  3. SKYRIZI [Suspect]
     Active Substance: RISANKIZUMAB-RZAA
     Dosage: SKYRIZI 150 MG
     Route: 058
     Dates: start: 20220912

REACTIONS (3)
  - Pain [Unknown]
  - Psoriasis [Not Recovered/Not Resolved]
  - Headache [Unknown]
